APPROVED DRUG PRODUCT: PACLITAXEL
Active Ingredient: PACLITAXEL
Strength: 6MG/ML
Dosage Form/Route: INJECTABLE;INJECTION
Application: A076233 | Product #001
Applicant: HOSPIRA INC
Approved: Aug 1, 2002 | RLD: No | RS: No | Type: DISCN